FAERS Safety Report 9341836 (Version 2)
Quarter: 2013Q3

REPORT INFORMATION
  Report Type: Spontaneous
  Country: US (occurrence: None)
  Receive Date: 20130606
  Receipt Date: 20130801
  Transmission Date: 20140515
  Serious: Yes (Death)
  Sender: FDA-Public Use
  Company Number: 2013-219

PATIENT
  Age: 57 Year
  Sex: Female

DRUGS (1)
  1. FAZACLO [Suspect]
     Route: 048
     Dates: start: 20130512

REACTIONS (2)
  - Death [None]
  - Unresponsive to stimuli [None]
